FAERS Safety Report 8154611-0 (Version None)
Quarter: 2012Q1

REPORT INFORMATION
  Report Type: 
  Country: None (occurrence: None)
  Receive Date: 20120221
  Receipt Date: 20120209
  Transmission Date: 20120608
  Serious: Yes (Other)
  Sender: FDA-Public Use
  Company Number: TR-COVIDIEN/TYCO HEALTHCARE/MALLINCKRODT-T201200637

PATIENT
  Age: 72 Year
  Sex: Female

DRUGS (1)
  1. EXALGO [Suspect]
     Indication: SPINAL DISORDER
     Dosage: 8 MG, UNK
     Route: 048

REACTIONS (1)
  - EAR PRURITUS [None]
